FAERS Safety Report 25545891 (Version 1)
Quarter: 2025Q3

REPORT INFORMATION
  Report Type: Spontaneous
  Country: US (occurrence: US)
  Receive Date: 20250712
  Receipt Date: 20250712
  Transmission Date: 20251020
  Serious: No
  Sender: SANOFI AVENTIS
  Company Number: US-SA-2025SA196331

PATIENT
  Age: 49 Year
  Sex: Female

DRUGS (9)
  1. DUPIXENT [Suspect]
     Active Substance: DUPILUMAB
     Indication: Asthma
     Route: 058
     Dates: start: 20240416
  2. ADVAIR HFA [Concomitant]
     Active Substance: FLUTICASONE PROPIONATE\SALMETEROL XINAFOATE
  3. ALEVE [Concomitant]
     Active Substance: NAPROXEN SODIUM
     Route: 048
  4. Metamucil Smooth Texture [Concomitant]
     Route: 048
  5. IRON [Concomitant]
     Active Substance: IRON
     Route: 048
  6. GABAPENTIN [Concomitant]
     Active Substance: GABAPENTIN
     Route: 048
  7. SERTRALINE HYDROCHLORIDE [Concomitant]
     Active Substance: SERTRALINE HYDROCHLORIDE
  8. CROMOLYN SODIUM [Concomitant]
     Active Substance: CROMOLYN SODIUM
  9. LORATADINE [Concomitant]
     Active Substance: LORATADINE
     Route: 048

REACTIONS (1)
  - Wheezing [Unknown]

NARRATIVE: CASE EVENT DATE: 20250709
